FAERS Safety Report 5290114-9 (Version None)
Quarter: 2007Q1

REPORT INFORMATION
  Report Type: 
  Country: None (occurrence: None)
  Receive Date: 20070330
  Receipt Date: 20070322
  Transmission Date: 20070707
  Serious: Yes (Life-Threatening, Hospitalization)
  Sender: FDA-Public Use
  Company Number: 310003M07ESP

PATIENT
  Age: 28 Year
  Sex: Female
  Weight: 60 kg

DRUGS (4)
  1. GONAL-F [Suspect]
     Indication: DRUG USE FOR UNKNOWN INDICATION
     Dosage: 150 IU, 1 IN 1 DAYS, SUBCUTANEOUS
     Route: 058
     Dates: start: 20061027, end: 20061106
  2. OVIDREL [Suspect]
     Indication: DRUG USE FOR UNKNOWN INDICATION
     Dosage: 250 MCG, SUBCUTANEOUS
     Route: 058
     Dates: start: 20061106
  3. CETROTIDE [Suspect]
     Indication: DRUG USE FOR UNKNOWN INDICATION
     Dosage: 250 MCG, SUBCUTANEOUS
     Route: 058
     Dates: start: 20061103, end: 20061106
  4. MENOPUR [Suspect]
     Indication: DRUG USE FOR UNKNOWN INDICATION
     Dosage: 10 DOSAGE FORMS, SUBCUTANEOUS
     Route: 058
     Dates: start: 20061027, end: 20061106

REACTIONS (3)
  - ABDOMINAL PAIN [None]
  - MALAISE [None]
  - OVARIAN DISORDER [None]
